FAERS Safety Report 9161214 (Version 1)
Quarter: 2013Q1

REPORT INFORMATION
  Report Type: Spontaneous
  Country: FR (occurrence: FR)
  Receive Date: 20130313
  Receipt Date: 20130313
  Transmission Date: 20140127
  Serious: Yes (Hospitalization)
  Sender: FDA-Public Use
  Company Number: FR-GLAXOSMITHKLINE-B0683707A

PATIENT
  Age: 31 Year
  Sex: Male

DRUGS (3)
  1. CLAMOXYL [Suspect]
     Indication: NASOPHARYNGITIS
     Dosage: 500MG TWICE PER DAY
     Route: 048
     Dates: start: 20100914, end: 20100930
  2. DOLIPRANE [Suspect]
     Indication: NASOPHARYNGITIS
     Dosage: 500MG UNKNOWN
     Route: 048
     Dates: start: 20100914, end: 20100930
  3. MAGNE B6 [Suspect]
     Indication: PRODUCT USED FOR UNKNOWN INDICATION
     Route: 048
     Dates: start: 20100930, end: 20101005

REACTIONS (5)
  - Rash maculo-papular [Recovered/Resolved]
  - Pruritus [Recovered/Resolved]
  - Erythema [Unknown]
  - Drug reaction with eosinophilia and systemic symptoms [Unknown]
  - Roseolovirus test positive [None]
